FAERS Safety Report 20143915 (Version 1)
Quarter: 2021Q4

REPORT INFORMATION
  Report Type: Spontaneous
  Country: US (occurrence: US)
  Receive Date: 20211203
  Receipt Date: 20211203
  Transmission Date: 20220303
  Serious: No
  Sender: FDA-Public Use
  Company Number: US-GLAXOSMITHKLINE-USCH2021085637

PATIENT
  Sex: Male

DRUGS (1)
  1. ADVIL MIGRAINE [Suspect]
     Active Substance: IBUPROFEN
     Indication: Product used for unknown indication
     Dosage: UNK

REACTIONS (6)
  - Blister [Unknown]
  - Pain [Unknown]
  - Insomnia [Unknown]
  - Decreased appetite [Unknown]
  - Herpes zoster [Unknown]
  - Psoriasis [Unknown]
